FAERS Safety Report 23911351 (Version 1)
Quarter: 2024Q2

REPORT INFORMATION
  Report Type: Report from Study
  Country: US (occurrence: US)
  Receive Date: 20240528
  Receipt Date: 20240528
  Transmission Date: 20240715
  Serious: Yes (Hospitalization)
  Sender: FDA-Public Use
  Company Number: US-MYLANLABS-2024M1045295

PATIENT
  Age: 53 Year
  Sex: Female
  Weight: 77.11 kg

DRUGS (1)
  1. GLATIRAMER ACETATE [Suspect]
     Active Substance: GLATIRAMER ACETATE
     Indication: Relapsing-remitting multiple sclerosis
     Dosage: 40 MILLIGRAM, 3XW (THREE TIMES PER WEEK)
     Route: 058

REACTIONS (6)
  - Relapsing-remitting multiple sclerosis [Unknown]
  - Injection site bruising [Unknown]
  - Asthenia [Unknown]
  - Vision blurred [Unknown]
  - Product dose omission issue [Unknown]
  - Neuralgia [Unknown]

NARRATIVE: CASE EVENT DATE: 20240501
